FAERS Safety Report 7679494-4 (Version None)
Quarter: 2011Q3

REPORT INFORMATION
  Report Type: 
  Country: None (occurrence: None)
  Receive Date: 20110812
  Receipt Date: 20110812
  Transmission Date: 20111222
  Serious: Yes (Life-Threatening, Hospitalization)
  Sender: FDA-Public Use
  Company Number: None

PATIENT

DRUGS (1)
  1. SUBOXONE [Suspect]
     Indication: DRUG WITHDRAWAL SYNDROME
     Dosage: 2 FILMS
     Route: 048
     Dates: start: 20110611, end: 20110823

REACTIONS (10)
  - HEADACHE [None]
  - APHAGIA [None]
  - DRUG WITHDRAWAL SYNDROME [None]
  - PRODUCT QUALITY ISSUE [None]
  - PRODUCT PHYSICAL ISSUE [None]
  - PAIN [None]
  - ABDOMINAL PAIN [None]
  - CHILLS [None]
  - INSOMNIA [None]
  - HYPERHIDROSIS [None]
